FAERS Safety Report 18355009 (Version 2)
Quarter: 2021Q2

REPORT INFORMATION
  Report Type: Spontaneous
  Country: US (occurrence: US)
  Receive Date: 20201007
  Receipt Date: 20210512
  Transmission Date: 20210717
  Serious: No
  Sender: FDA-Public Use
  Company Number: US-PFIZER INC-2020383965

PATIENT
  Age: 73 Year
  Sex: Male

DRUGS (2)
  1. INLYTA [Suspect]
     Active Substance: AXITINIB
     Indication: RENAL CELL CARCINOMA
     Dosage: 5 MG, 2X/DAY
     Route: 048
     Dates: start: 20190906
  2. INLYTA [Suspect]
     Active Substance: AXITINIB
     Indication: PSORIATIC ARTHROPATHY
     Dosage: 5 MG, 1X/DAY
     Dates: start: 202009

REACTIONS (4)
  - Constipation [Unknown]
  - Neoplasm progression [Unknown]
  - Diarrhoea [Unknown]
  - Decreased appetite [Recovered/Resolved]
